FAERS Safety Report 4445623-9 (Version None)
Quarter: 2004Q3

REPORT INFORMATION
  Report Type: 
  Country: None (occurrence: None)
  Receive Date: 20040802
  Receipt Date: 20040607
  Transmission Date: 20050211
  Serious: No
  Sender: FDA-Public Use
  Company Number: 2004-116909-NL

PATIENT
  Age: 32 Year
  Sex: Female
  Weight: 63.3 kg

DRUGS (1)
  1. NUVARING [Suspect]
     Dosage: DF DAILY, VAGINAL
     Route: 067
     Dates: start: 20040418

REACTIONS (2)
  - DEVICE FAILURE [None]
  - MEDICAL DEVICE DISCOMFORT [None]
